FAERS Safety Report 18646860 (Version 1)
Quarter: 2020Q4

REPORT INFORMATION
  Report Type: Other
  Country: US (occurrence: US)
  Receive Date: 20201221
  Receipt Date: 20201221
  Transmission Date: 20210114
  Serious: No
  Sender: FDA-Public Use
  Company Number: US-ACORDA-ACO_167233_2020

PATIENT
  Sex: Male

DRUGS (3)
  1. INBRIJA [Suspect]
     Active Substance: LEVODOPA
     Indication: PARKINSON^S DISEASE
     Dosage: 84 MILLIGRAM, PRN, NOT TO EXCEED 5 DOSES PER DAY
  2. INBRIJA [Suspect]
     Active Substance: LEVODOPA
     Indication: ON AND OFF PHENOMENON
  3. INBRIJA [Suspect]
     Active Substance: LEVODOPA
     Indication: FREEZING PHENOMENON

REACTIONS (8)
  - Device difficult to use [Unknown]
  - Dizziness [Unknown]
  - Ill-defined disorder [Unknown]
  - Off label use [Unknown]
  - Tremor [Unknown]
  - Therapeutic product effect variable [Unknown]
  - Asthenia [Unknown]
  - Musculoskeletal stiffness [Unknown]
